FAERS Safety Report 23123651 (Version 1)
Quarter: 2023Q4

REPORT INFORMATION
  Report Type: Spontaneous
  Country: GB (occurrence: None)
  Receive Date: 20231030
  Receipt Date: 20231030
  Transmission Date: 20240110
  Serious: Yes (Other)
  Sender: FDA-Public Use
  Company Number: None

PATIENT
  Age: 68 Year
  Sex: Male
  Weight: 76 kg

DRUGS (4)
  1. ATORVASTATIN [Suspect]
     Active Substance: ATORVASTATIN
     Indication: Product used for unknown indication
  2. ASPIRIN [Concomitant]
     Active Substance: ASPIRIN
     Indication: Product used for unknown indication
  3. CANDESARTAN [Concomitant]
     Active Substance: CANDESARTAN
     Indication: Product used for unknown indication
  4. FELODIPINE [Concomitant]
     Active Substance: FELODIPINE
     Indication: Product used for unknown indication

REACTIONS (7)
  - Anxiety [Not Recovered/Not Resolved]
  - Irritability [Not Recovered/Not Resolved]
  - Agitation [Not Recovered/Not Resolved]
  - Hostility [Not Recovered/Not Resolved]
  - Aggression [Not Recovered/Not Resolved]
  - Confusional state [Not Recovered/Not Resolved]
  - Depressed mood [Not Recovered/Not Resolved]
